FAERS Safety Report 23365877 (Version 1)
Quarter: 2024Q1

REPORT INFORMATION
  Report Type: Spontaneous
  Country: US (occurrence: None)
  Receive Date: 20240103
  Receipt Date: 20240103
  Transmission Date: 20240410
  Serious: Yes (Other)
  Sender: FDA-Public Use
  Company Number: None

PATIENT
  Age: 48 Year
  Sex: Male
  Weight: 74.84 kg

DRUGS (3)
  1. DOXYCYCLINE [Suspect]
     Active Substance: DOXYCYCLINE
     Indication: Helicobacter infection
     Dates: start: 20231129
  2. OMEPRAZOLE [Suspect]
     Active Substance: OMEPRAZOLE
  3. METRONIDAZOLE [Suspect]
     Active Substance: METRONIDAZOLE

REACTIONS (12)
  - Dyspnoea [None]
  - Nasal congestion [None]
  - Chest discomfort [None]
  - Asthenia [None]
  - Chromaturia [None]
  - Diarrhoea [None]
  - Vomiting [None]
  - Haematochezia [None]
  - Product communication issue [None]
  - Product use issue [None]
  - Pneumonia [None]
  - Dizziness [None]

NARRATIVE: CASE EVENT DATE: 20231129
